FAERS Safety Report 8363659-2 (Version None)
Quarter: 2012Q2

REPORT INFORMATION
  Report Type: 
  Country: None (occurrence: None)
  Receive Date: 20120516
  Receipt Date: 20120510
  Transmission Date: 20120825
  Serious: Yes (Death, Other)
  Sender: FDA-Public Use
  Company Number: US-JNJFOC-20120510904

PATIENT
  Age: 85 Year
  Sex: Female

DRUGS (2)
  1. REOPRO [Suspect]
     Indication: CORONARY ARTERY THROMBOSIS
     Route: 042
  2. HEPARIN [Suspect]
     Indication: CORONARY ARTERY THROMBOSIS
     Route: 065

REACTIONS (3)
  - MYOCARDIAL INFARCTION [None]
  - DEATH [None]
  - CEREBRAL HAEMORRHAGE [None]
